FAERS Safety Report 6186418-8 (Version None)
Quarter: 2009Q2

REPORT INFORMATION
  Report Type: 
  Country: None (occurrence: None)
  Receive Date: 20090511
  Receipt Date: 20090501
  Transmission Date: 20091009
  Serious: Yes (Hospitalization)
  Sender: FDA-Public Use
  Company Number: US-AMGEN-QUU345256

PATIENT
  Sex: Female

DRUGS (2)
  1. ENBREL [Suspect]
     Indication: RHEUMATOID ARTHRITIS
     Route: 058
     Dates: start: 20040210
  2. METHOTREXATE [Concomitant]
     Route: 048

REACTIONS (2)
  - CORONARY ARTERY OCCLUSION [None]
  - OSTEOARTHRITIS [None]
